FAERS Safety Report 21463473 (Version 2)
Quarter: 2022Q4

REPORT INFORMATION
  Report Type: Spontaneous
  Country: None (occurrence: US)
  Receive Date: 20221017
  Receipt Date: 20221026
  Transmission Date: 20230112
  Serious: Yes (Other)
  Sender: FDA-Public Use
  Company Number: US-Vero Biotech-2133895

PATIENT
  Age: 63 Year
  Sex: Male

DRUGS (2)
  1. GENOSYL [Suspect]
     Active Substance: NITRIC OXIDE
     Indication: Acute respiratory failure
     Route: 055
     Dates: start: 20221001
  2. GENOSYL [Suspect]
     Active Substance: NITRIC OXIDE

REACTIONS (4)
  - Lung transplant [Unknown]
  - Respiratory failure [Unknown]
  - Hypoxia [Unknown]
  - Underdose [Unknown]

NARRATIVE: CASE EVENT DATE: 20221001
